FAERS Safety Report 11368009 (Version 1)
Quarter: 2015Q3

REPORT INFORMATION
  Report Type: Spontaneous
  Country: US (occurrence: None)
  Receive Date: 20150811
  Receipt Date: 20150811
  Transmission Date: 20151125
  Serious: Yes (Hospitalization)
  Sender: FDA-Public Use
  Company Number: None

PATIENT
  Age: 27 Year
  Sex: Female
  Weight: 45.36 kg

DRUGS (1)
  1. FALMINA [Suspect]
     Active Substance: ETHINYL ESTRADIOL\LEVONORGESTREL
     Indication: CONTRACEPTION
     Dosage: 28 ONCE DAILY TAKEN BY MOUTH
     Route: 048

REACTIONS (9)
  - Paraesthesia oral [None]
  - Photophobia [None]
  - Hyperacusis [None]
  - Movement disorder [None]
  - Headache [None]
  - Staring [None]
  - Paraesthesia [None]
  - Speech disorder [None]
  - Unevaluable event [None]

NARRATIVE: CASE EVENT DATE: 20150601
